FAERS Safety Report 10136189 (Version 4)
Quarter: 2016Q1

REPORT INFORMATION
  Report Type: Spontaneous
  Country: FR (occurrence: FR)
  Receive Date: 20140429
  Receipt Date: 20160209
  Transmission Date: 20160525
  Serious: Yes (Other)
  Sender: FDA-Public Use
  Company Number: FR-BRISTOL-MYERS SQUIBB COMPANY-20193363

PATIENT
  Age: 34 Year
  Sex: Female

DRUGS (2)
  1. ORENCIA [Suspect]
     Active Substance: ABATACEPT
     Indication: PRODUCT USED FOR UNKNOWN INDICATION
     Dosage: 750 MG, UNK
     Route: 042
     Dates: start: 20110921, end: 20140110
  2. METOJECT [Suspect]
     Active Substance: METHOTREXATE SODIUM
     Indication: RHEUMATOID ARTHRITIS
     Dosage: 15 MG, UNK
     Route: 058
     Dates: end: 20131225

REACTIONS (2)
  - Pregnancy on oral contraceptive [Unknown]
  - Abortion spontaneous [Unknown]
